FAERS Safety Report 7398222-3 (Version None)
Quarter: 2011Q2

REPORT INFORMATION
  Report Type: 
  Country: None (occurrence: None)
  Receive Date: 20110406
  Receipt Date: 20110324
  Transmission Date: 20111010
  Serious: Yes (Other)
  Sender: FDA-Public Use
  Company Number: DE-WATSON-2011-04739

PATIENT
  Sex: Female
  Weight: 2.97 kg

DRUGS (3)
  1. I-THYROXIN [Concomitant]
     Indication: AUTOIMMUNE THYROIDITIS
     Dosage: 50 UG, DAILY
     Route: 064
     Dates: end: 20101107
  2. CITALOPRAM HYDROBROMIDE [Suspect]
     Indication: ANXIETY DISORDER
     Dosage: 20 MG, DAILY
     Route: 064
     Dates: start: 20100119, end: 20101107
  3. FOLIO FORTE [Concomitant]
     Indication: AUTOIMMUNE THYROIDITIS
     Dosage: 0.8 MG, DAILY
     Route: 064
     Dates: end: 20100712

REACTIONS (1)
  - SMALL FOR DATES BABY [None]
